FAERS Safety Report 5504981-4 (Version None)
Quarter: 2007Q4

REPORT INFORMATION
  Report Type: 
  Country: None (occurrence: None)
  Receive Date: 20071031
  Receipt Date: 20071017
  Transmission Date: 20080405
  Serious: Yes (Hospitalization)
  Sender: FDA-Public Use
  Company Number: 2007BI022257

PATIENT
  Age: 47 Year
  Sex: Female

DRUGS (6)
  1. NATALIZUMAB [Suspect]
     Indication: MULTIPLE SCLEROSIS
     Dosage: 300 MG; QM; IV
     Route: 042
     Dates: start: 20070202
  2. AVONEX [Concomitant]
  3. COLACE [Concomitant]
  4. OXYBUTIN [Concomitant]
  5. PROZAC [Concomitant]
  6. BACLOFEN [Concomitant]

REACTIONS (11)
  - APLASTIC ANAEMIA [None]
  - ASTHENIA [None]
  - AUTOMATIC BLADDER [None]
  - BALANCE DISORDER [None]
  - BLOOD BILIRUBIN INCREASED [None]
  - INFECTION [None]
  - MALAISE [None]
  - MYELODYSPLASTIC SYNDROME [None]
  - PROTHROMBIN TIME PROLONGED [None]
  - VOMITING [None]
  - WHEELCHAIR USER [None]
